FAERS Safety Report 5802512-2 (Version None)
Quarter: 2008Q2

REPORT INFORMATION
  Report Type: 
  Country: None (occurrence: None)
  Receive Date: 20080627
  Receipt Date: 20070925
  Transmission Date: 20081010
  Serious: Yes (Other)
  Sender: FDA-Public Use
  Company Number: USEN-77DSGU

PATIENT

DRUGS (1)
  1. AVAGARD [Suspect]
     Dosage: 6 ML, AS NEEDED
     Dates: start: 20070901

REACTIONS (1)
  - ILL-DEFINED DISORDER [None]
